FAERS Safety Report 15800853 (Version 1)
Quarter: 2019Q1

REPORT INFORMATION
  Report Type: Spontaneous
  Country: US (occurrence: US)
  Receive Date: 20190109
  Receipt Date: 20190109
  Transmission Date: 20190417
  Serious: No
  Sender: FDA-Public Use
  Company Number: US-P+ L DEVELOPMENTS OF NEWYORK CORPORATION-2061009

PATIENT
  Age: 79 Year
  Sex: Male
  Weight: 84.09 kg

DRUGS (1)
  1. LORATADINE. [Suspect]
     Active Substance: LORATADINE
     Indication: HYPERSENSITIVITY
     Route: 048
     Dates: start: 20180520, end: 20180527

REACTIONS (1)
  - Dry skin [Unknown]

NARRATIVE: CASE EVENT DATE: 20180520
